FAERS Safety Report 6691329 (Version 2)
Quarter: 2014Q1

REPORT INFORMATION
  Report Type: Spontaneous
  Country: US (occurrence: None)
  Receive Date: 20080303
  Receipt Date: 20140304
  Transmission Date: 20141002
  Serious: Yes (Hospitalization, Other)
  Sender: FDA-Public Use
  Company Number: RB-8801-2007

PATIENT
  Sex: Male

DRUGS (2)
  1. SUBOXONE 8 MG (RECKITT BENCKISER) [Suspect]
     Indication: DRUG DEPENDENCE
     Route: 064
     Dates: start: 200611, end: 20061212
  2. SUBUTEX 8 MG [Suspect]
     Indication: DRUG DEPENDENCE
     Dosage: 16 MG BID TRANSPLACENTAL
     Route: 064
     Dates: start: 20061213, end: 200708

REACTIONS (2)
  - Maternal exposure during pregnancy [None]
  - Drug withdrawal syndrome neonatal [None]
